FAERS Safety Report 12802210 (Version 1)
Quarter: 2016Q3

REPORT INFORMATION
  Report Type: Spontaneous
  Country: US (occurrence: US)
  Receive Date: 20160930
  Receipt Date: 20160930
  Transmission Date: 20161109
  Serious: Yes (Hospitalization)
  Sender: FDA-Public Use
  Company Number: None

PATIENT
  Age: 75 Year
  Sex: Female
  Weight: 90.8 kg

DRUGS (4)
  1. ADAPTER [Concomitant]
  2. ZOSYN [Suspect]
     Active Substance: PIPERACILLIN SODIUM\TAZOBACTAM SODIUM
     Indication: INFECTION
     Dosage: ?          OTHER FREQUENCY:ONE TIME;?
     Route: 042
     Dates: start: 20160930, end: 20160930
  3. BRAUN BAG [Concomitant]
  4. NS 50 BAG [Concomitant]
     Active Substance: SODIUM CHLORIDE

REACTIONS (1)
  - Erythema [None]

NARRATIVE: CASE EVENT DATE: 20160930
